FAERS Safety Report 9562097 (Version 1)
Quarter: 2013Q3

REPORT INFORMATION
  Report Type: Spontaneous
  Country: FR (occurrence: FR)
  Receive Date: 20130927
  Receipt Date: 20130927
  Transmission Date: 20140515
  Serious: Yes (Hospitalization, Other)
  Sender: FDA-Public Use
  Company Number: FR-PFIZER INC-2013271861

PATIENT
  Age: 70 Year
  Sex: Female

DRUGS (6)
  1. XANAX [Suspect]
     Indication: MAJOR DEPRESSION
     Dosage: 0.5 MG, 3X/DAY
     Route: 048
  2. LOXAPAC [Suspect]
     Indication: MAJOR DEPRESSION
     Dosage: 25 MG, 3X/DAY
     Route: 048
  3. LEPTICUR [Suspect]
     Indication: EXTRAPYRAMIDAL DISORDER
     Dosage: 10 MG, 1X/DAY
     Route: 048
  4. FLECAINE [Suspect]
     Indication: VENTRICULAR EXTRASYSTOLES
     Dosage: 150 MG, 1X/DAY
     Route: 048
     Dates: end: 20120621
  5. LAROXYL [Suspect]
     Indication: MAJOR DEPRESSION
     Dosage: 25 MG, 2X/DAY
     Route: 048
     Dates: start: 20120601
  6. KARDEGIC [Concomitant]

REACTIONS (4)
  - Orthostatic hypotension [Recovered/Resolved]
  - Fall [Recovered/Resolved]
  - Hypotension [Recovered/Resolved]
  - General physical health deterioration [Unknown]
